FAERS Safety Report 11774180 (Version 1)
Quarter: 2015Q4

REPORT INFORMATION
  Report Type: Spontaneous
  Country: JP (occurrence: JP)
  Receive Date: 20151124
  Receipt Date: 20151124
  Transmission Date: 20160304
  Serious: Yes (Other)
  Sender: FDA-Public Use
  Company Number: JP-PFIZER INC-2015396458

PATIENT
  Age: 53 Year
  Sex: Female

DRUGS (2)
  1. HYDROCORTISONE SODIUM SUCCINATE [Suspect]
     Active Substance: HYDROCORTISONE SODIUM SUCCINATE
     Route: 065
  2. SOMATROPIN [Suspect]
     Active Substance: SOMATROPIN
     Indication: METABOLIC ABNORMALITY MANAGEMENT
     Route: 058

REACTIONS (1)
  - Diabetic ketoacidosis [Unknown]
